FAERS Safety Report 9584245 (Version 1)
Quarter: 2013Q4

REPORT INFORMATION
  Report Type: Spontaneous
  Country: US (occurrence: US)
  Receive Date: 20131002
  Receipt Date: 20131002
  Transmission Date: 20140711
  Serious: Yes (Hospitalization)
  Sender: FDA-Public Use
  Company Number: US-AMGEN-USASP2013051724

PATIENT
  Age: 47 Year
  Sex: Male
  Weight: 117.91 kg

DRUGS (6)
  1. ENBREL [Suspect]
     Indication: RHEUMATOID ARTHRITIS
     Dosage: 50 MG, QWK
     Route: 058
  2. CEFDINIR [Concomitant]
     Dosage: 300 MG, UNK
  3. SEPTRA [Concomitant]
     Dosage: 800-160
  4. ALLOPURINOL [Concomitant]
     Dosage: 300 MG, UNK
  5. OXAPROZIN [Concomitant]
     Dosage: 600 MG, UNK
  6. PRILOSEC                           /00661201/ [Concomitant]
     Dosage: 10 MG, UNK

REACTIONS (1)
  - Cellulitis [Unknown]
